FAERS Safety Report 8298495-9 (Version None)
Quarter: 2012Q2

REPORT INFORMATION
  Report Type: 
  Country: None (occurrence: None)
  Receive Date: 20120419
  Receipt Date: 20120106
  Transmission Date: 20120825
  Serious: No
  Sender: FDA-Public Use
  Company Number: US-ABBOTT-12P-163-0891622-00

PATIENT
  Sex: Male
  Weight: 47.67 kg

DRUGS (3)
  1. LUPRON DEPOT-PED [Suspect]
     Indication: BONE DEVELOPMENT ABNORMAL
     Route: 030
     Dates: start: 20110401
  2. CALCIUM CARBONATE [Concomitant]
     Indication: PRODUCT USED FOR UNKNOWN INDICATION
  3. VITAMIN D [Concomitant]
     Indication: PRODUCT USED FOR UNKNOWN INDICATION

REACTIONS (2)
  - OFF LABEL USE [None]
  - BONE DEVELOPMENT ABNORMAL [None]
